FAERS Safety Report 24018934 (Version 1)
Quarter: 2024Q2

REPORT INFORMATION
  Report Type: Spontaneous
  Country: US (occurrence: US)
  Receive Date: 20240627
  Receipt Date: 20240627
  Transmission Date: 20240715
  Serious: Yes (Hospitalization)
  Sender: FDA-Public Use
  Company Number: US-MYLANLABS-2024M1057604

PATIENT
  Age: 64 Year
  Sex: Male

DRUGS (7)
  1. ALBUTEROL [Suspect]
     Active Substance: ALBUTEROL
     Indication: Asthma
     Dosage: UNK
     Route: 065
  2. DEXAMETHASONE [Suspect]
     Active Substance: DEXAMETHASONE
     Indication: Asthma
     Dosage: UNK
     Route: 065
  3. EPINEPHRINE [Suspect]
     Active Substance: EPINEPHRINE
     Indication: Asthma
     Dosage: UNK
     Route: 065
  4. MAGNESIUM [Suspect]
     Active Substance: MAGNESIUM
     Indication: Asthma
     Dosage: UNK
     Route: 065
  5. DUPILUMAB [Suspect]
     Active Substance: DUPILUMAB
     Indication: Asthma
     Dosage: UNK, DUPILUMAB THERAPY TREATMENT CHANGED TO SALBUTAMOL
     Route: 065
  6. TEZEPELUMAB [Suspect]
     Active Substance: TEZEPELUMAB
     Indication: Asthma
     Dosage: UNK
     Route: 065
  7. KETAMINE [Concomitant]
     Active Substance: KETAMINE
     Indication: Asthma
     Dosage: UNK, RECEIVED KETAMINE 0.3?KG/MG/HR
     Route: 065

REACTIONS (2)
  - Drug ineffective [Unknown]
  - Off label use [Unknown]
